FAERS Safety Report 8530384-4 (Version None)
Quarter: 2012Q3

REPORT INFORMATION
  Report Type: 
  Country: None (occurrence: None)
  Receive Date: 20120723
  Receipt Date: 20120713
  Transmission Date: 20120928
  Serious: Yes (Other)
  Sender: FDA-Public Use
  Company Number: US-ASTRAZENECA-2009SE32959

PATIENT
  Age: 68 Year
  Sex: Female

DRUGS (3)
  1. TOPROL-XL [Concomitant]
  2. SEROQUEL [Suspect]
     Route: 048
  3. SEROQUEL [Suspect]
     Route: 048

REACTIONS (2)
  - SUICIDAL BEHAVIOUR [None]
  - DRUG DOSE OMISSION [None]
